FAERS Safety Report 14187467 (Version 1)
Quarter: 2017Q4

REPORT INFORMATION
  Report Type: Spontaneous
  Country: US (occurrence: None)
  Receive Date: 20171114
  Receipt Date: 20171114
  Transmission Date: 20180321
  Serious: No
  Sender: FDA-Public Use
  Company Number: None

PATIENT
  Age: 55 Year
  Sex: Male
  Weight: 111.13 kg

DRUGS (25)
  1. TAMSULOSIN [Concomitant]
     Active Substance: TAMSULOSIN
  2. DOXYCYCLINE. [Concomitant]
     Active Substance: DOXYCYCLINE
  3. SLO NIACIN [Concomitant]
  4. IBUPROPHEN [Concomitant]
     Active Substance: IBUPROFEN
  5. ARIPIPRAZOLE. [Concomitant]
     Active Substance: ARIPIPRAZOLE
  6. TYLENOL EXTRA STRENGTH [Concomitant]
     Active Substance: ACETAMINOPHEN
  7. CLONAZEPAM. [Concomitant]
     Active Substance: CLONAZEPAM
  8. REXULTI [Concomitant]
     Active Substance: BREXPIPRAZOLE
  9. CENTRUM SILVER [Concomitant]
     Active Substance: MINERALS\VITAMINS
  10. FISH OIL [Concomitant]
     Active Substance: FISH OIL
  11. LOSARTAN 100MG TABS [Suspect]
     Active Substance: LOSARTAN
     Indication: HYPERTENSION
     Dosage: 1 PILL ONCE DAILY MOUTH
     Route: 048
     Dates: start: 20170920, end: 20171102
  12. RANITIDINE. [Concomitant]
     Active Substance: RANITIDINE
  13. FINASTERIDE. [Concomitant]
     Active Substance: FINASTERIDE
  14. NORVASC [Concomitant]
     Active Substance: AMLODIPINE BESYLATE
  15. GLUCOSAMINE SULFATE [Concomitant]
     Active Substance: GLUCOSAMINE SULFATE
  16. METOPROLOL. [Concomitant]
     Active Substance: METOPROLOL
  17. OMEPRAZOLE. [Concomitant]
     Active Substance: OMEPRAZOLE
  18. LOSARTAN 100MG TABS [Suspect]
     Active Substance: LOSARTAN
     Indication: CEREBROVASCULAR ACCIDENT PROPHYLAXIS
     Dosage: 1 PILL ONCE DAILY MOUTH
     Route: 048
     Dates: start: 20170920, end: 20171102
  19. ROSUVASTATIN. [Concomitant]
     Active Substance: ROSUVASTATIN
  20. BUSPIRONE [Concomitant]
     Active Substance: BUSPIRONE HYDROCHLORIDE
  21. MELATONIN [Concomitant]
     Active Substance: MELATONIN
  22. DULOXETINE. [Concomitant]
     Active Substance: DULOXETINE
  23. OXCARBAZEPINE. [Concomitant]
     Active Substance: OXCARBAZEPINE
  24. ASPIRIN. [Concomitant]
     Active Substance: ASPIRIN
  25. VITAMIN D3 [Concomitant]
     Active Substance: CHOLECALCIFEROL

REACTIONS (2)
  - Pruritus [None]
  - Rash erythematous [None]

NARRATIVE: CASE EVENT DATE: 20171025
